FAERS Safety Report 5619866-2 (Version None)
Quarter: 2008Q1

REPORT INFORMATION
  Report Type: 
  Country: None (occurrence: None)
  Receive Date: 20080208
  Receipt Date: 20070116
  Transmission Date: 20080703
  Serious: No
  Sender: FDA-Public Use
  Company Number: US-ABBOTT-07P-163-0357171-00

PATIENT
  Sex: Female
  Weight: 90.8 kg

DRUGS (8)
  1. HYDROCODONE BITARTRATE [Suspect]
     Indication: MULTIPLE SCLEROSIS
     Dosage: 10/650 MG
     Route: 048
     Dates: start: 20040101
  2. HYDROCODONE BITARTRATE [Suspect]
     Indication: FIBROMYALGIA
  3. BISELECT [Concomitant]
     Indication: HYPERTENSION
     Route: 048
  4. CADUET [Concomitant]
     Indication: HYPERTENSION
     Dosage: 10/40 MG
     Route: 048
  5. CADUET [Concomitant]
     Indication: BLOOD CHOLESTEROL
  6. LYRICA [Concomitant]
     Indication: PAIN
     Route: 048
  7. FLEXERIL [Concomitant]
     Indication: MUSCLE SPASMS
     Route: 048
  8. IBUPROFEN COLD AND SINUS [Concomitant]
     Indication: NASAL CONGESTION
     Dosage: 400/600 MG
     Route: 048

REACTIONS (1)
  - DRUG SCREEN POSITIVE [None]
